FAERS Safety Report 14236454 (Version 4)
Quarter: 2018Q2

REPORT INFORMATION
  Report Type: Report from Study
  Country: US (occurrence: US)
  Receive Date: 20171129
  Receipt Date: 20180619
  Transmission Date: 20180711
  Serious: Yes (Hospitalization)
  Sender: FDA-Public Use
  Company Number: US-EISAI MEDICAL RESEARCH-EC-2017-033512

PATIENT
  Age: 56 Year
  Sex: Female
  Weight: 70.45 kg

DRUGS (15)
  1. AFINITOR [Suspect]
     Active Substance: EVEROLIMUS
     Route: 048
     Dates: start: 20171126
  2. NOVOLOG [Concomitant]
     Active Substance: INSULIN ASPART
  3. AFINITOR [Suspect]
     Active Substance: EVEROLIMUS
     Indication: PRODUCT USED FOR UNKNOWN INDICATION
     Route: 048
     Dates: end: 201711
  4. LENVIMA [Suspect]
     Active Substance: LENVATINIB
     Route: 048
     Dates: start: 20171126, end: 201806
  5. SYNTHROID [Concomitant]
     Active Substance: LEVOTHYROXINE SODIUM
  6. VITAMIN C [Concomitant]
     Active Substance: ASCORBIC ACID
  7. ONDANSETRON [Concomitant]
     Active Substance: ONDANSETRON
  8. TOUJEO [Concomitant]
     Active Substance: INSULIN GLARGINE
  9. ZOFRAN [Concomitant]
     Active Substance: ONDANSETRON HYDROCHLORIDE
  10. LENVIMA [Suspect]
     Active Substance: LENVATINIB
     Route: 048
     Dates: start: 201806
  11. VITAMIN D [Concomitant]
     Active Substance: CHOLECALCIFEROL
  12. LENVIMA [Suspect]
     Active Substance: LENVATINIB
     Indication: RENAL CANCER
     Route: 048
     Dates: start: 20171110, end: 201711
  13. IRON [Concomitant]
     Active Substance: IRON
  14. MULTIVITAMINS [Concomitant]
     Active Substance: VITAMINS
  15. VITAMIN B12 [Concomitant]
     Active Substance: CYANOCOBALAMIN

REACTIONS (18)
  - Catheter site pain [Unknown]
  - Vitamin D decreased [Unknown]
  - Nervousness [Recovering/Resolving]
  - Blood thyroid stimulating hormone increased [Unknown]
  - Seasonal allergy [Unknown]
  - Nausea [Not Recovered/Not Resolved]
  - Fatigue [Not Recovered/Not Resolved]
  - Weight decreased [Not Recovered/Not Resolved]
  - Early satiety [Not Recovered/Not Resolved]
  - Blood potassium decreased [Recovering/Resolving]
  - Headache [Unknown]
  - Decreased appetite [Not Recovered/Not Resolved]
  - Blood pressure increased [Unknown]
  - Hyponatraemia [Unknown]
  - Musculoskeletal pain [Unknown]
  - Cough [Unknown]
  - Blood iron decreased [Unknown]
  - Haemoglobin decreased [Unknown]

NARRATIVE: CASE EVENT DATE: 201711
